FAERS Safety Report 10151003 (Version 1)
Quarter: 2014Q2

REPORT INFORMATION
  Report Type: Spontaneous
  Country: US (occurrence: US)
  Receive Date: 20140502
  Receipt Date: 20140502
  Transmission Date: 20141212
  Serious: No
  Sender: FDA-Public Use
  Company Number: US-PFIZER INC-2014118298

PATIENT
  Sex: Female

DRUGS (1)
  1. ALDACTONE [Suspect]
     Indication: BLOOD TESTOSTERONE
     Dosage: UNK

REACTIONS (4)
  - Fat redistribution [Unknown]
  - Madarosis [Unknown]
  - Alopecia [Unknown]
  - Off label use [Unknown]
